FAERS Safety Report 5334816-4 (Version None)
Quarter: 2007Q2

REPORT INFORMATION
  Report Type: 
  Country: None (occurrence: None)
  Receive Date: 20070525
  Receipt Date: 20070514
  Transmission Date: 20071010
  Serious: Yes (Hospitalization, Other)
  Sender: FDA-Public Use
  Company Number: NZ-KINGPHARMUSA00001-K200700602

PATIENT

DRUGS (6)
  1. EPINEPHRINE [Suspect]
     Indication: TONGUE OEDEMA
     Dosage: 1 MG, SINGLE
     Route: 058
  2. EPINEPHRINE [Suspect]
     Dosage: 1 MG, BOLUS
     Route: 040
  3. EPINEPHRINE [Suspect]
     Dosage: 1 MG, BOLUS
     Route: 040
  4. PARAMAX /00495101/ [Concomitant]
  5. PROMETHAZINE [Concomitant]
     Dosage: 25 MG, UNK
     Route: 042
  6. HYDROCORTISONE [Concomitant]
     Dosage: 200 MG, UNK
     Route: 042

REACTIONS (11)
  - ACUTE MYOCARDIAL INFARCTION [None]
  - BLOOD PRESSURE SYSTOLIC INCREASED [None]
  - BUNDLE BRANCH BLOCK RIGHT [None]
  - CORONARY ARTERY DISEASE [None]
  - CORONARY ARTERY STENOSIS [None]
  - DRUG ADMINISTRATION ERROR [None]
  - ELECTROCARDIOGRAM QT PROLONGED [None]
  - HYPOTENSION [None]
  - PULMONARY OEDEMA [None]
  - SINUS TACHYCARDIA [None]
  - TROPONIN T INCREASED [None]
